FAERS Safety Report 21622989 (Version 1)
Quarter: 2022Q4

REPORT INFORMATION
  Report Type: Other
  Country: US (occurrence: None)
  Receive Date: 20221121
  Receipt Date: 20221121
  Transmission Date: 20230112
  Serious: Yes (Other)
  Sender: FDA-Public Use
  Company Number: US-ROCHE-3221034

PATIENT
  Age: 67 Year
  Sex: Female

DRUGS (10)
  1. OCREVUS [Suspect]
     Active Substance: OCRELIZUMAB
     Indication: Multiple sclerosis
     Dosage: STRENGTH: 300 MG/ML,
     Route: 042
  2. OCREVUS [Suspect]
     Active Substance: OCRELIZUMAB
     Route: 042
  3. AMPYRA [Suspect]
     Active Substance: DALFAMPRIDINE
     Indication: Product used for unknown indication
     Route: 065
  4. SERTRALINE [Suspect]
     Active Substance: SERTRALINE HYDROCHLORIDE
     Indication: Product used for unknown indication
     Route: 065
  5. CYMBALTA [Suspect]
     Active Substance: DULOXETINE HYDROCHLORIDE
     Indication: Product used for unknown indication
     Route: 065
  6. GABAPENTIN [Suspect]
     Active Substance: GABAPENTIN
     Indication: Product used for unknown indication
     Route: 065
  7. TIZANIDINE [Concomitant]
     Active Substance: TIZANIDINE
  8. TRIAZOLAM [Concomitant]
     Active Substance: TRIAZOLAM
  9. ADDERALL XR [Concomitant]
     Active Substance: AMPHETAMINE ASPARTATE\AMPHETAMINE SULFATE\DEXTROAMPHETAMINE SACCHARATE\DEXTROAMPHETAMINE SULFATE
  10. XANAX [Concomitant]
     Active Substance: ALPRAZOLAM

REACTIONS (16)
  - Neuralgia [Unknown]
  - Urinary incontinence [Unknown]
  - Hypertension [Unknown]
  - Heart rate increased [Unknown]
  - Dizziness [Unknown]
  - Cellulitis [Unknown]
  - Peripheral venous disease [Unknown]
  - Nasopharyngitis [Recovered/Resolved]
  - Stomatitis [Unknown]
  - Fall [Unknown]
  - Anxiety [Unknown]
  - Weight decreased [Unknown]
  - Somnolence [Unknown]
  - Nausea [Unknown]
  - Vomiting [Unknown]
  - Constipation [Unknown]
